FAERS Safety Report 5022124-0 (Version None)
Quarter: 2006Q2

REPORT INFORMATION
  Report Type: 
  Country: None (occurrence: None)
  Receive Date: 20060609
  Receipt Date: 20051025
  Transmission Date: 20061013
  Serious: Yes (Death)
  Sender: FDA-Public Use
  Company Number: US-AVENTIS-200519293US

PATIENT
  Age: 60 Year
  Sex: Male
  Weight: 68 kg

DRUGS (2)
  1. LOVENOX [Suspect]
     Indication: IMMOBILE
  2. LOVENOX [Suspect]
     Indication: PANCREATIC CARCINOMA

REACTIONS (3)
  - BURNING SENSATION [None]
  - DEATH [None]
  - REFUSAL OF TREATMENT BY PATIENT [None]
